FAERS Safety Report 10077704 (Version 3)
Quarter: 2014Q2

REPORT INFORMATION
  Report Type: Report from Study
  Country: DE (occurrence: DE)
  Receive Date: 20140414
  Receipt Date: 20140522
  Transmission Date: 20141212
  Serious: Yes (Hospitalization)
  Sender: FDA-Public Use
  Company Number: PHHY2014DE041638

PATIENT
  Age: 46 Year
  Sex: Male
  Weight: 86 kg

DRUGS (6)
  1. ULTIBRO BREEZHALER [Suspect]
     Indication: CHRONIC OBSTRUCTIVE PULMONARY DISEASE
     Dosage: 1 DF, QD
     Route: 055
     Dates: start: 20131204, end: 20140309
  2. ULTIBRO BREEZHALER [Suspect]
     Dosage: 1 DF, QD
     Route: 055
     Dates: start: 20140401
  3. BRONCHO SPRAY [Concomitant]
  4. PREDNISOLONE [Concomitant]
     Dosage: 20 MG, UNK
  5. PREDNISOLONE [Concomitant]
     Dosage: 50 MG, UNK
  6. PREDNISOLONE [Concomitant]
     Dosage: 15 MG, QD
     Dates: start: 20140308, end: 20140318

REACTIONS (2)
  - Pneumonia [Recovering/Resolving]
  - Chronic obstructive pulmonary disease [Recovering/Resolving]
